FAERS Safety Report 9042829 (Version 1)
Quarter: 2013Q1

REPORT INFORMATION
  Report Type: Report from Study
  Country: US (occurrence: US)
  Receive Date: 20130129
  Receipt Date: 20130129
  Transmission Date: 20140127
  Serious: No
  Sender: FDA-Public Use
  Company Number: US-ABBOTT-12P-163-0910201-00

PATIENT
  Age: 45 Year
  Sex: Female

DRUGS (11)
  1. HUMIRA 40 MG/0.8 ML PEN [Suspect]
     Indication: RHEUMATOID ARTHRITIS
     Dates: start: 20110617, end: 20120214
  2. HUMIRA 40 MG/0.8 ML PEN [Suspect]
     Dates: end: 20120228
  3. HUMIRA 40 MG/0.8 ML PEN [Suspect]
  4. SKELAXIN [Concomitant]
     Indication: MUSCLE RELAXANT THERAPY
  5. OMEPRAZOLE [Concomitant]
     Indication: ABDOMINAL DISCOMFORT
  6. LEXAPRO [Concomitant]
     Indication: DEPRESSION
  7. TRAMADOL [Concomitant]
     Indication: PAIN
     Dosage: DAILY
  8. VICODIN [Concomitant]
     Indication: PAIN
     Dosage: 5/500
  9. LYRICA [Concomitant]
     Indication: FIBROMYALGIA
  10. ENABLEX [Concomitant]
     Indication: URINARY INCONTINENCE
  11. BOTOX [Concomitant]
     Indication: MUSCLE RELAXANT THERAPY
     Dates: start: 201111

REACTIONS (1)
  - Sinusitis [Not Recovered/Not Resolved]
